FAERS Safety Report 19410725 (Version 1)
Quarter: 2021Q2

REPORT INFORMATION
  Report Type: Spontaneous
  Country: US (occurrence: US)
  Receive Date: 20210611
  Receipt Date: 20210611
  Transmission Date: 20210717
  Serious: Yes (Hospitalization)
  Sender: FDA-Public Use
  Company Number: None

PATIENT
  Sex: Male

DRUGS (15)
  1. TORSEMIDE. [Concomitant]
     Active Substance: TORSEMIDE
  2. VASCEPA [Concomitant]
     Active Substance: ICOSAPENT ETHYL
  3. BELSOMRA [Concomitant]
     Active Substance: SUVOREXANT
  4. HYDROCO [Concomitant]
  5. KLOR?CON [Concomitant]
     Active Substance: POTASSIUM CHLORIDE
  6. LOSARTAN. [Concomitant]
     Active Substance: LOSARTAN
  7. ALLOPURINOL. [Concomitant]
     Active Substance: ALLOPURINOL
  8. NIFEDIPINE. [Concomitant]
     Active Substance: NIFEDIPINE
  9. PREDNISONE. [Concomitant]
     Active Substance: PREDNISONE
  10. HUMIRA [Suspect]
     Active Substance: ADALIMUMAB
     Indication: PRODUCT USED FOR UNKNOWN INDICATION
     Dosage: 40 MG/M Q2W SC
     Route: 058
     Dates: start: 20210610
  11. COLCRYS [Concomitant]
     Active Substance: COLCHICINE
  12. FAMOTIDINE. [Concomitant]
     Active Substance: FAMOTIDINE
  13. CARVEDILOL. [Concomitant]
     Active Substance: CARVEDILOL
  14. NORCO [Concomitant]
     Active Substance: ACETAMINOPHEN\HYDROCODONE BITARTRATE
  15. LIPITOR [Concomitant]
     Active Substance: ATORVASTATIN CALCIUM

REACTIONS (1)
  - Stent placement [None]
